FAERS Safety Report 9270555 (Version 1)
Quarter: 2013Q2

REPORT INFORMATION
  Report Type: Spontaneous
  Country: US (occurrence: US)
  Receive Date: 20130503
  Receipt Date: 20130503
  Transmission Date: 20140414
  Serious: Yes (Hospitalization)
  Sender: FDA-Public Use
  Company Number: US-B.I. PHARMACEUTICALS,INC./RIDGEFIELD-2013-BI-12251BP

PATIENT
  Sex: Male
  Weight: 181 kg

DRUGS (12)
  1. PRADAXA [Suspect]
     Indication: CEREBROVASCULAR ACCIDENT PROPHYLAXIS
     Dosage: 300 MG
     Route: 048
     Dates: start: 20120409
  2. PRADAXA [Suspect]
     Indication: ATRIAL FIBRILLATION
  3. MOBIC [Concomitant]
     Indication: ARTHRITIS
  4. HYDROCHLOROTHIAZIDE [Concomitant]
     Indication: HYPERTENSION
  5. FISH OIL [Concomitant]
     Indication: HYPERCHOLESTEROLAEMIA
  6. ASPIRIN [Concomitant]
     Indication: CEREBROVASCULAR ACCIDENT PROPHYLAXIS
     Dosage: 81 MG
     Route: 048
  7. ASPIRIN [Concomitant]
     Indication: ATRIAL FIBRILLATION
  8. CRESTOR [Concomitant]
     Indication: HYPERCHOLESTEROLAEMIA
  9. AMARYL [Concomitant]
     Indication: TYPE 2 DIABETES MELLITUS
  10. METFORMIN [Concomitant]
     Indication: TYPE 2 DIABETES MELLITUS
  11. COZAAR [Concomitant]
     Indication: HYPERTENSION
  12. COREG [Concomitant]
     Indication: ATRIAL FIBRILLATION

REACTIONS (1)
  - Cerebrovascular accident [Recovered/Resolved with Sequelae]
